FAERS Safety Report 8212575-5 (Version None)
Quarter: 2012Q1

REPORT INFORMATION
  Report Type: 
  Country: None (occurrence: None)
  Receive Date: 20120315
  Receipt Date: 20120229
  Transmission Date: 20120608
  Serious: Yes (Hospitalization)
  Sender: FDA-Public Use
  Company Number: DE-WATSON-2012-04360

PATIENT
  Age: 40 Year
  Sex: Female

DRUGS (1)
  1. BACLOFEN [Suspect]
     Indication: SUICIDE ATTEMPT
     Dosage: 500 MG SINGLE
     Route: 048

REACTIONS (14)
  - HYPOTHERMIA [None]
  - CARDIOVASCULAR INSUFFICIENCY [None]
  - RESPIRATORY ALKALOSIS [None]
  - HYPOXIA [None]
  - HYPERTENSION [None]
  - SUICIDE ATTEMPT [None]
  - INTENTIONAL OVERDOSE [None]
  - POISONING [None]
  - COMA [None]
  - CENTRAL NERVOUS SYSTEM LESION [None]
  - RESPIRATORY FAILURE [None]
  - BRADYCARDIA [None]
  - EPILEPSY [None]
  - TACHYCARDIA [None]
